FAERS Safety Report 5765115-4 (Version None)
Quarter: 2008Q2

REPORT INFORMATION
  Report Type: 
  Country: None (occurrence: None)
  Receive Date: 20080611
  Receipt Date: 20080602
  Transmission Date: 20081010
  Serious: Yes (Other)
  Sender: FDA-Public Use
  Company Number: US-JNJFOC-20080403203

PATIENT
  Sex: Female
  Weight: 77.11 kg

DRUGS (10)
  1. FENTANYL TRANSDERMAL SYSTEM [Suspect]
     Indication: SYSTEMIC LUPUS ERYTHEMATOSUS
     Route: 062
  2. OXYCODONE HCL [Concomitant]
     Dosage: 4-6 TIMES DAILY
     Route: 048
  3. OXYCODONE HCL [Concomitant]
     Indication: BREAKTHROUGH PAIN
     Dosage: EVERY 6 HOURS AS NEEDED
     Route: 048
  4. XANAX [Concomitant]
     Indication: ANXIETY
     Route: 048
  5. KLONOPIN [Concomitant]
     Indication: PANIC ATTACK
     Route: 048
  6. NORTRIPTYLINE HCL [Concomitant]
     Indication: DEPRESSION
     Route: 048
  7. ACIPHEX [Concomitant]
     Indication: GASTROOESOPHAGEAL REFLUX DISEASE
     Route: 048
  8. AMBIEN [Concomitant]
     Indication: SLEEP DISORDER
     Route: 048
  9. ESCLIM [Concomitant]
     Indication: HORMONE REPLACEMENT THERAPY
     Route: 048
  10. TYLENOL [Concomitant]
     Indication: PAIN
     Route: 048

REACTIONS (5)
  - AUTOIMMUNE THYROIDITIS [None]
  - DRUG INEFFECTIVE [None]
  - INADEQUATE ANALGESIA [None]
  - OEDEMA PERIPHERAL [None]
  - WRONG TECHNIQUE IN DRUG USAGE PROCESS [None]
